FAERS Safety Report 12074173 (Version 1)
Quarter: 2016Q1

REPORT INFORMATION
  Report Type: Spontaneous
  Country: US (occurrence: US)
  Receive Date: 20160212
  Receipt Date: 20160212
  Transmission Date: 20160526
  Serious: Yes (Death, Hospitalization, Other)
  Sender: FDA-Public Use
  Company Number: US-JNJFOC-20160210639

PATIENT
  Sex: Female

DRUGS (1)
  1. XARELTO [Suspect]
     Active Substance: RIVAROXABAN
     Indication: PRODUCT USED FOR UNKNOWN INDICATION
     Route: 048

REACTIONS (6)
  - Uterine haemorrhage [Unknown]
  - Internal haemorrhage [Unknown]
  - Hypoxic-ischaemic encephalopathy [Fatal]
  - Gastrointestinal haemorrhage [Unknown]
  - Cerebrovascular accident [Fatal]
  - Rectal haemorrhage [Unknown]
